FAERS Safety Report 13765455 (Version 1)
Quarter: 2017Q3

REPORT INFORMATION
  Report Type: Spontaneous
  Country: US (occurrence: US)
  Receive Date: 20170718
  Receipt Date: 20170718
  Transmission Date: 20171127
  Serious: Yes (Death, Hospitalization)
  Sender: FDA-Public Use
  Company Number: US-ALLERGAN-1729400US

PATIENT
  Age: 68 Year
  Sex: Male
  Weight: 99 kg

DRUGS (3)
  1. MORPHINE ER [Suspect]
     Active Substance: MORPHINE
     Indication: CANCER PAIN
     Dosage: UNK
     Dates: end: 20170327
  2. HYDROCODONE BITARTRATE;ACETAMINOPHEN UNK [Suspect]
     Active Substance: ACETAMINOPHEN\HYDROCODONE BITARTRATE
     Indication: PRODUCT USED FOR UNKNOWN INDICATION
     Dosage: UNK
  3. ELIQUIS [Concomitant]
     Active Substance: APIXABAN
     Dosage: UNK
     Dates: start: 20150330, end: 20170327

REACTIONS (6)
  - Disease progression [Fatal]
  - Blood creatinine increased [Recovered/Resolved]
  - Dyspnoea [Not Recovered/Not Resolved]
  - Anaemia [Recovering/Resolving]
  - Syncope [Recovered/Resolved]
  - Hypotension [Recovering/Resolving]

NARRATIVE: CASE EVENT DATE: 20170323
